FAERS Safety Report 13400747 (Version 1)
Quarter: 2017Q2

REPORT INFORMATION
  Report Type: Spontaneous
  Country: US (occurrence: US)
  Receive Date: 20170404
  Receipt Date: 20170404
  Transmission Date: 20170830
  Serious: No
  Sender: FDA-Public Use
  Company Number: US-TEVA-750896ACC

PATIENT
  Age: 72 Year
  Sex: Female

DRUGS (10)
  1. VICODIN [Concomitant]
     Active Substance: ACETAMINOPHEN\HYDROCODONE BITARTRATE
  2. COREG [Concomitant]
     Active Substance: CARVEDILOL
  3. DONEPEZIL. [Concomitant]
     Active Substance: DONEPEZIL
  4. NORCO [Concomitant]
     Active Substance: ACETAMINOPHEN\HYDROCODONE BITARTRATE
  5. VITAMIN D [Concomitant]
     Active Substance: CHOLECALCIFEROL
  6. CLONAZEPAM. [Concomitant]
     Active Substance: CLONAZEPAM
  7. BUSPAR [Concomitant]
     Active Substance: BUSPIRONE HYDROCHLORIDE
  8. LIBRAX [Concomitant]
     Active Substance: CHLORDIAZEPOXIDE HYDROCHLORIDE\CLIDINIUM BROMIDE
  9. COPAXONE [Suspect]
     Active Substance: GLATIRAMER ACETATE
     Indication: MULTIPLE SCLEROSIS
     Route: 058
     Dates: start: 20061027
  10. XANAX [Concomitant]
     Active Substance: ALPRAZOLAM

REACTIONS (1)
  - Balance disorder [Unknown]

NARRATIVE: CASE EVENT DATE: 201702
